FAERS Safety Report 9579524 (Version 2)
Quarter: 2013Q4

REPORT INFORMATION
  Report Type: Spontaneous
  Country: US (occurrence: US)
  Receive Date: 20131001
  Receipt Date: 20131001
  Transmission Date: 20140711
  Serious: No
  Sender: FDA-Public Use
  Company Number: US-AMGEN-USASP2013013574

PATIENT
  Age: 52 Year
  Sex: Male
  Weight: 104.7 kg

DRUGS (9)
  1. ENBREL [Suspect]
     Indication: ANKYLOSING SPONDYLITIS
     Dosage: 50 MG, QWK
     Route: 058
     Dates: start: 20130130
  2. CELEBREX [Concomitant]
     Dosage: 200 MG, UNK
  3. CELEBREX [Concomitant]
     Dosage: 100 MG, UNK
  4. CELEBREX [Concomitant]
     Dosage: 200 MG, QD
     Route: 048
     Dates: start: 201109
  5. VITAMIN C                          /00008001/ [Concomitant]
     Dosage: 500 MG, UNK
  6. VITAMIN D                          /00107901/ [Concomitant]
     Dosage: 1000 UNIT, UNK
  7. MULTIVITAMINS, PLAIN [Concomitant]
     Dosage: UNK
  8. INDOCIN                            /00003801/ [Concomitant]
     Dosage: 25 MG, TID
     Route: 048
     Dates: start: 201109
  9. TESTOSTERONE [Concomitant]
     Dosage: 4 PUMPS A DAY

REACTIONS (3)
  - Diarrhoea [Recovered/Resolved]
  - Polyarthritis [Unknown]
  - Hypogonadism [Unknown]
